FAERS Safety Report 20226354 (Version 5)
Quarter: 2022Q2

REPORT INFORMATION
  Report Type: Spontaneous
  Country: US (occurrence: US)
  Receive Date: 20211224
  Receipt Date: 20220419
  Transmission Date: 20220721
  Serious: No
  Sender: FDA-Public Use
  Company Number: US-NOVARTISTESTPH-NVSC2021US295263

PATIENT
  Sex: Female

DRUGS (2)
  1. PROMACTA [Suspect]
     Active Substance: ELTROMBOPAG OLAMINE
     Indication: Thrombocytopenia
     Dosage: 75 MG, QD
     Route: 048
     Dates: start: 20210628
  2. PROMACTA [Suspect]
     Active Substance: ELTROMBOPAG OLAMINE
     Indication: Thrombosis
     Dosage: 75 MG, QD
     Route: 048
     Dates: start: 202106

REACTIONS (6)
  - Migraine [Recovering/Resolving]
  - Headache [Unknown]
  - Contusion [Unknown]
  - Petechiae [Unknown]
  - Platelet count decreased [Recovering/Resolving]
  - Pain [Unknown]
